FAERS Safety Report 5867230-3 (Version None)
Quarter: 2008Q3

REPORT INFORMATION
  Report Type: 
  Country: None (occurrence: None)
  Receive Date: 20080902
  Receipt Date: 20080822
  Transmission Date: 20090109
  Serious: Yes (Hospitalization)
  Sender: FDA-Public Use
  Company Number: US-MERCK-0808USA04350

PATIENT
  Sex: Female
  Weight: 104 kg

DRUGS (1)
  1. FOSAMAX [Suspect]
     Indication: OSTEOPOROSIS
     Route: 048
     Dates: start: 20000901, end: 20001005

REACTIONS (2)
  - ADVERSE DRUG REACTION [None]
  - GASTROINTESTINAL DISORDER [None]
